FAERS Safety Report 11445960 (Version 1)
Quarter: 2015Q3

REPORT INFORMATION
  Report Type: Spontaneous
  Country: US (occurrence: US)
  Receive Date: 20150902
  Receipt Date: 20150902
  Transmission Date: 20151125
  Serious: Yes (Other)
  Sender: FDA-Public Use
  Company Number: US-PFIZER INC-2015287611

PATIENT
  Age: 53 Year
  Sex: Female

DRUGS (1)
  1. LYRICA [Suspect]
     Active Substance: PREGABALIN
     Indication: FIBROMYALGIA
     Dosage: 100 MG, 2X/DAY
     Dates: start: 2006

REACTIONS (5)
  - Sciatic nerve injury [Unknown]
  - Hypokinesia [Unknown]
  - Product packaging issue [Unknown]
  - Lung neoplasm malignant [Unknown]
  - Panic attack [Unknown]

NARRATIVE: CASE EVENT DATE: 2009
